FAERS Safety Report 8354827-4 (Version None)
Quarter: 2012Q2

REPORT INFORMATION
  Report Type: 
  Country: None (occurrence: None)
  Receive Date: 20120510
  Receipt Date: 20120427
  Transmission Date: 20120825
  Serious: Yes (Other)
  Sender: FDA-Public Use
  Company Number: MC201200287

PATIENT

DRUGS (1)
  1. CLEVIPREX [Suspect]

REACTIONS (1)
  - RENAL FAILURE ACUTE [None]
